FAERS Safety Report 8376766-5 (Version None)
Quarter: 2012Q2

REPORT INFORMATION
  Report Type: 
  Country: None (occurrence: None)
  Receive Date: 20120522
  Receipt Date: 20120210
  Transmission Date: 20120825
  Serious: No
  Sender: FDA-Public Use
  Company Number: US-BRISTOL-MYERS SQUIBB COMPANY-16394520

PATIENT
  Age: 82 Year
  Sex: Male

DRUGS (2)
  1. ONGLYZA [Suspect]
     Indication: BLOOD GLUCOSE
     Dates: start: 20120101
  2. GLIPIZIDE [Suspect]
     Dosage: GLIPIZIDE XL

REACTIONS (1)
  - HYPERGLYCAEMIA [None]
